FAERS Safety Report 23698462 (Version 4)
Quarter: 2025Q1

REPORT INFORMATION
  Report Type: Spontaneous
  Country: US (occurrence: US)
  Receive Date: 20240402
  Receipt Date: 20250202
  Transmission Date: 20250409
  Serious: No
  Sender: SANOFI AVENTIS
  Company Number: US-SA-SAC20240326001094

PATIENT
  Sex: Female
  Weight: 110 kg

DRUGS (20)
  1. DUPIXENT [Suspect]
     Active Substance: DUPILUMAB
     Indication: Neurodermatitis
     Dosage: 300 MG, QOW
     Route: 058
     Dates: start: 20231009
  2. DUPIXENT [Suspect]
     Active Substance: DUPILUMAB
     Indication: Rheumatoid arthritis
  3. LYSINE [Concomitant]
     Active Substance: LYSINE
  4. NITROGLYCERIN [Concomitant]
     Active Substance: NITROGLYCERIN
  5. TYLENOL EXTRA STRENGTH [Concomitant]
     Active Substance: ACETAMINOPHEN
  6. ZINC [Concomitant]
     Active Substance: ZINC
  7. HYDROXYZINE HYDROCHLORIDE [Concomitant]
     Active Substance: HYDROXYZINE HYDROCHLORIDE
  8. DEXLANSOPRAZOLE DELAYED RELEASE [Concomitant]
     Active Substance: DEXLANSOPRAZOLE
  9. DICYCLOMINE HYDROCHLORIDE [Concomitant]
     Active Substance: DICYCLOMINE HYDROCHLORIDE
  10. METHOTREXATE [Concomitant]
     Active Substance: METHOTREXATE
  11. METOPROLOL SUCCINATE [Concomitant]
     Active Substance: METOPROLOL SUCCINATE
  12. EZETIMIBE [Concomitant]
     Active Substance: EZETIMIBE
  13. CLONAZEPAM [Concomitant]
     Active Substance: CLONAZEPAM
  14. ISOSORBIDE MONONITRATE [Concomitant]
     Active Substance: ISOSORBIDE MONONITRATE
  15. ARIPIPRAZOLE [Concomitant]
     Active Substance: ARIPIPRAZOLE
  16. MONTELUKAST SODIUM [Concomitant]
     Active Substance: MONTELUKAST SODIUM
  17. FLUTICASONE PROPIONATE [Concomitant]
     Active Substance: FLUTICASONE PROPIONATE
  18. GABAPENTIN [Concomitant]
     Active Substance: GABAPENTIN
  19. MINERALS\VITAMINS [Concomitant]
     Active Substance: MINERALS\VITAMINS
  20. AZELASTINE HYDROCHLORIDE [Concomitant]
     Active Substance: AZELASTINE HYDROCHLORIDE

REACTIONS (8)
  - Mouth ulceration [Not Recovered/Not Resolved]
  - Sneezing [Not Recovered/Not Resolved]
  - Cough [Not Recovered/Not Resolved]
  - Rhinorrhoea [Not Recovered/Not Resolved]
  - Pharyngeal paraesthesia [Unknown]
  - Salivary hypersecretion [Unknown]
  - Drug ineffective [Unknown]
  - Product use in unapproved indication [Unknown]
